FAERS Safety Report 16379398 (Version 1)
Quarter: 2019Q2

REPORT INFORMATION
  Report Type: Spontaneous
  Country: US (occurrence: US)
  Receive Date: 20190531
  Receipt Date: 20190531
  Transmission Date: 20190711
  Serious: Yes (Other)
  Sender: FDA-Public Use
  Company Number: US-NAPPMUNDI-USA-2019-0147320

PATIENT
  Sex: Male

DRUGS (4)
  1. FENTANYL. [Suspect]
     Active Substance: FENTANYL
     Indication: MYALGIA
     Dosage: 150 MCG/HR, DAILY
     Route: 062
  2. OXYCODONE HYDROCHLORIDE (SIMILAR TO NDA 22-272) [Suspect]
     Active Substance: OXYCODONE HYDROCHLORIDE
     Indication: MYALGIA
     Route: 048
  3. FENTANYL CITRATE. [Suspect]
     Active Substance: FENTANYL CITRATE
     Indication: BREAKTHROUGH PAIN
     Dosage: 600 MCG LOLLIPOPS, DAILY
     Route: 065
  4. OXYCONTIN [Suspect]
     Active Substance: OXYCODONE HYDROCHLORIDE
     Indication: MYALGIA
     Route: 048

REACTIONS (9)
  - Autoimmune disorder [Unknown]
  - Drug dependence [Recovering/Resolving]
  - Asthma [Unknown]
  - Thoracic outlet syndrome [Unknown]
  - Myositis [Unknown]
  - Emotional poverty [Unknown]
  - Acoustic neuroma [Unknown]
  - Autoimmune colitis [Unknown]
  - Somnolence [Unknown]
